FAERS Safety Report 8797523 (Version 3)
Quarter: 2013Q1

REPORT INFORMATION
  Report Type: Spontaneous
  Country: FR (occurrence: FR)
  Receive Date: 20120920
  Receipt Date: 20130201
  Transmission Date: 20140127
  Serious: Yes (Hospitalization, Other)
  Sender: FDA-Public Use
  Company Number: PHHY2012FR080316

PATIENT
  Age: 66 Year
  Sex: Female

DRUGS (13)
  1. TEGRETOL LP [Suspect]
     Indication: HERPES ZOSTER
     Dosage: 1 DF, TID
     Route: 048
     Dates: start: 20120814, end: 20120819
  2. ZELITREX [Suspect]
     Indication: HERPES ZOSTER
     Dosage: 2 DF, TID
     Route: 048
     Dates: start: 20120806, end: 20120819
  3. LYRICA [Suspect]
     Indication: HERPES ZOSTER
     Dosage: 300 MG, DAILY
     Route: 048
     Dates: start: 20120806, end: 20120810
  4. LYRICA [Suspect]
     Dosage: 125 MG, DAILY
     Route: 048
     Dates: start: 20120810, end: 20120814
  5. ACUPAN [Suspect]
     Indication: HERPES ZOSTER
     Route: 048
     Dates: start: 20120806, end: 20120810
  6. IXPRIM [Suspect]
     Indication: HERPES ZOSTER
     Dosage: 2 DF, TID
     Route: 048
     Dates: start: 20120810, end: 20120814
  7. XANAX [Concomitant]
     Indication: HERPES ZOSTER
     Dosage: 0.25 MG, UNK
     Route: 048
     Dates: start: 20120810, end: 20120819
  8. FLUOXETINE [Concomitant]
  9. LANZOR [Concomitant]
  10. PRAVASTATINE [Concomitant]
  11. SOTALOL [Concomitant]
  12. SPAGULAX [Concomitant]
  13. STILNOX [Concomitant]

REACTIONS (17)
  - Intervertebral disc protrusion [Unknown]
  - Ketonuria [Unknown]
  - Proteinuria [Unknown]
  - Blood creatine increased [Unknown]
  - Bone marrow disorder [Unknown]
  - Hepatocellular injury [Unknown]
  - Abdominal pain [Unknown]
  - Nausea [Recovered/Resolved]
  - Vomiting [Recovered/Resolved]
  - Decreased appetite [Recovered/Resolved]
  - Inappropriate antidiuretic hormone secretion [Unknown]
  - Asthenia [Unknown]
  - Blood osmolarity decreased [Unknown]
  - Hyponatraemia [Unknown]
  - Blood pressure increased [Unknown]
  - Diarrhoea [Unknown]
  - Headache [Unknown]
